FAERS Safety Report 7487830-7 (Version None)
Quarter: 2011Q2

REPORT INFORMATION
  Report Type: 
  Country: None (occurrence: None)
  Receive Date: 20110511
  Receipt Date: 20110428
  Transmission Date: 20111010
  Serious: Yes (Life-Threatening, Hospitalization)
  Sender: FDA-Public Use
  Company Number: 909942

PATIENT
  Age: 59 Year
  Sex: Female

DRUGS (2)
  1. (SONOVUE) [Suspect]
     Indication: CARDIAC STRESS TEST
     Dosage: INTRAVENOUS (NOT OTHERWISE SPECIFIED)
     Route: 042
  2. DOBUTAMINE HYDROCHLORIDE [Suspect]
     Indication: CARDIAC STRESS TEST

REACTIONS (2)
  - VENTRICULAR FIBRILLATION [None]
  - CARDIAC ARREST [None]
